FAERS Safety Report 4649949-5 (Version None)
Quarter: 2005Q2

REPORT INFORMATION
  Report Type: 
  Country: None (occurrence: None)
  Receive Date: 20050502
  Receipt Date: 20050422
  Transmission Date: 20051028
  Serious: Yes (Hospitalization)
  Sender: FDA-Public Use
  Company Number: FR-MERCK-0504FRA00081

PATIENT
  Age: 60 Year
  Sex: Male

DRUGS (6)
  1. PRIMAXIN [Suspect]
     Indication: LUNG INFECTION
     Route: 042
     Dates: start: 20050106, end: 20050108
  2. CLAVULANATE POTASSIUM AND TICARCILLIN DISODIUM [Suspect]
     Indication: LUNG INFECTION
     Route: 042
     Dates: start: 20050108, end: 20050114
  3. FUROSEMIDE [Concomitant]
     Route: 048
     Dates: start: 20041213
  4. RANITIDINE [Concomitant]
     Route: 048
     Dates: start: 20041213
  5. PAROXETINE [Concomitant]
     Indication: DEPRESSION
     Route: 048
     Dates: start: 20041213
  6. AMBROXOL HYDROCHLORIDE [Concomitant]
     Indication: LUNG INFECTION
     Route: 042
     Dates: start: 20041213

REACTIONS (2)
  - EOSINOPHILIA [None]
  - RASH [None]
